FAERS Safety Report 4637183-4 (Version None)
Quarter: 2005Q2

REPORT INFORMATION
  Report Type: 
  Country: None (occurrence: None)
  Receive Date: 20050325
  Receipt Date: 20050119
  Transmission Date: 20051028
  Serious: No
  Sender: FDA-Public Use
  Company Number: USA040979317

PATIENT
  Age: 83 Year
  Sex: Female
  Weight: 48 kg

DRUGS (17)
  1. FORTEO [Suspect]
     Indication: OSTEOPOROSIS
     Dosage: 20 UG/1 DAY
     Dates: start: 20040501
  2. LEVOTHYROXINE SODIUM [Concomitant]
  3. CALCIUM WITH VITAMIN D [Concomitant]
  4. ESTRADIOL [Concomitant]
  5. VIT C TAB [Concomitant]
  6. VITAMIN B-12 [Concomitant]
  7. TYLENOL (CAPLET) [Concomitant]
  8. PREDNISONE [Concomitant]
  9. PREDNISONE [Concomitant]
  10. CELEBREX [Concomitant]
  11. ATIVAN [Concomitant]
  12. LIDOCAINE [Concomitant]
  13. ANALGESIC BALM [Concomitant]
  14. VITAMIN E [Concomitant]
  15. VITAMINS [Concomitant]
  16. ACIPHEX [Concomitant]
  17. DURAGESIC (FENTANYL) [Concomitant]

REACTIONS (14)
  - ABDOMINAL PAIN UPPER [None]
  - ANOREXIA [None]
  - ASTHENIA [None]
  - BACK PAIN [None]
  - DIARRHOEA [None]
  - DIFFICULTY IN WALKING [None]
  - FOOD INTOLERANCE [None]
  - GASTROOESOPHAGEAL REFLUX DISEASE [None]
  - HYPOGEUSIA [None]
  - INSOMNIA [None]
  - INTERVERTEBRAL DISC COMPRESSION [None]
  - SPINAL FRACTURE [None]
  - STOMACH DISCOMFORT [None]
  - WEIGHT DECREASED [None]
